FAERS Safety Report 15761358 (Version 4)
Quarter: 2019Q2

REPORT INFORMATION
  Report Type: Report from Study
  Country: BR (occurrence: BR)
  Receive Date: 20181226
  Receipt Date: 20190531
  Transmission Date: 20190711
  Serious: Yes (Other)
  Sender: FDA-Public Use
  Company Number: PHHY2017BR189201

PATIENT
  Age: 52 Year
  Sex: Female
  Weight: 92 kg

DRUGS (6)
  1. COSENTYX [Suspect]
     Active Substance: SECUKINUMAB
     Dosage: 300 MG, QMO
     Route: 058
     Dates: start: 20190311
  2. COSENTYX [Suspect]
     Active Substance: SECUKINUMAB
     Dosage: UNK
     Route: 065
     Dates: start: 20190422
  3. COSENTYX [Suspect]
     Active Substance: SECUKINUMAB
     Dosage: 300 MG, QMO
     Route: 058
  4. COSENTYX [Suspect]
     Active Substance: SECUKINUMAB
     Indication: PSORIATIC ARTHROPATHY
     Dosage: 2 DF, UNK
     Route: 058
     Dates: start: 20171204
  5. COSENTYX [Suspect]
     Active Substance: SECUKINUMAB
     Dosage: 2 DF, UNK
     Route: 058
  6. ETANERCEPT [Concomitant]
     Active Substance: ETANERCEPT
     Indication: PRODUCT USED FOR UNKNOWN INDICATION
     Dosage: UNK
     Route: 065

REACTIONS (17)
  - Cellulitis [Not Recovered/Not Resolved]
  - Breast pain [Unknown]
  - Back pain [Unknown]
  - Cellulitis [Recovered/Resolved]
  - Swelling [Unknown]
  - Skin lesion [Not Recovered/Not Resolved]
  - Product administration error [Unknown]
  - Incorrect dose administered [Unknown]
  - Device use issue [Unknown]
  - Lymphadenitis bacterial [Unknown]
  - Limb injury [Not Recovered/Not Resolved]
  - Influenza [Unknown]
  - Pain [Not Recovered/Not Resolved]
  - Urinary tract infection [Recovered/Resolved]
  - Weight increased [Unknown]
  - Dyspnoea [Recovering/Resolving]
  - Fibromyalgia [Unknown]

NARRATIVE: CASE EVENT DATE: 20181212
